FAERS Safety Report 13210295 (Version 2)
Quarter: 2017Q1

REPORT INFORMATION
  Report Type: Report from Study
  Country: US (occurrence: US)
  Receive Date: 20170210
  Receipt Date: 20170224
  Transmission Date: 20170428
  Serious: Yes (Hospitalization, Other)
  Sender: FDA-Public Use
  Company Number: US-GILEAD-2017-0257242

PATIENT
  Age: 64 Year
  Sex: Male
  Weight: 112.2 kg

DRUGS (8)
  1. ADCIRCA [Concomitant]
     Active Substance: TADALAFIL
  2. DIPHENOXYLATE [Concomitant]
     Active Substance: DIPHENOXYLATE
  3. AMBRISENTAN [Suspect]
     Active Substance: AMBRISENTAN
     Indication: PULMONARY ARTERIAL HYPERTENSION
     Dosage: 5 MG, QD
     Route: 065
  4. REMODULIN [Concomitant]
     Active Substance: TREPROSTINIL
     Route: 042
  5. TORSEMIDE. [Concomitant]
     Active Substance: TORSEMIDE
  6. LEVOTHYROXINE. [Concomitant]
     Active Substance: LEVOTHYROXINE
  7. WARFARIN [Concomitant]
     Active Substance: WARFARIN
  8. TREPROSTINOL [Concomitant]
     Active Substance: TREPROSTINIL

REACTIONS (2)
  - Nasopharyngitis [Recovered/Resolved]
  - Central venous catheterisation [Recovered/Resolved]
